FAERS Safety Report 9924365 (Version 2)
Quarter: 2015Q4

REPORT INFORMATION
  Report Type: Report from Study
  Country: US (occurrence: US)
  Receive Date: 20140226
  Receipt Date: 20151118
  Transmission Date: 20160305
  Serious: Yes (Other)
  Sender: FDA-Public Use
  Company Number: US-ROCHE-1337605

PATIENT
  Sex: Male

DRUGS (9)
  1. LISINOPRIL. [Concomitant]
     Active Substance: LISINOPRIL
  2. METFORMIN [Concomitant]
     Active Substance: METFORMIN HYDROCHLORIDE
  3. CIPRO [Concomitant]
     Active Substance: CIPROFLOXACIN HYDROCHLORIDE
  4. GLIMEPIRIDE. [Concomitant]
     Active Substance: GLIMEPIRIDE
  5. COMBIGAN [Concomitant]
     Active Substance: BRIMONIDINE TARTRATE\TIMOLOL MALEATE
  6. LUCENTIS [Suspect]
     Active Substance: RANIBIZUMAB
     Indication: DIABETIC RETINOPATHY
     Dosage: 0.05 ML
     Route: 050
  7. LUCENTIS [Suspect]
     Active Substance: RANIBIZUMAB
     Indication: RETINAL DETACHMENT
  8. LUCENTIS [Suspect]
     Active Substance: RANIBIZUMAB
     Indication: DIABETIC RETINAL OEDEMA
  9. JANUVIA [Concomitant]
     Active Substance: SITAGLIPTIN PHOSPHATE

REACTIONS (10)
  - Vitreous floaters [Unknown]
  - Metamorphopsia [Unknown]
  - Photophobia [Unknown]
  - Photopsia [Unknown]
  - Vision blurred [Unknown]
  - Eye pruritus [Unknown]
  - Eye pain [Unknown]
  - Ocular hyperaemia [Unknown]
  - Visual acuity reduced [Unknown]
  - Muscle twitching [Unknown]
